FAERS Safety Report 8510866-1 (Version None)
Quarter: 2012Q3

REPORT INFORMATION
  Report Type: 
  Country: None (occurrence: None)
  Receive Date: 20120709
  Receipt Date: 20120709
  Transmission Date: 20120928
  Serious: No
  Sender: FDA-Public Use
  Company Number: None

PATIENT
  Age: 82 Year
  Sex: Female

DRUGS (16)
  1. DEXAMETHASONE [Concomitant]
  2. FENTANYL [Concomitant]
  3. MELOXICAM [Concomitant]
  4. LUBIPROSTONE [Concomitant]
  5. LOSARTAN POTASSIUM [Concomitant]
  6. POTASSIUM CHLORIDE [Concomitant]
  7. CALCIUM CARBONATE [Concomitant]
  8. OMEPRAZOLE [Concomitant]
  9. REVLIMID [Suspect]
     Indication: MULTIPLE MYELOMA
     Dosage: 15 MG DAILY X 21/28 DAYS BY MOUTH
     Route: 048
     Dates: start: 20081224
  10. HYDROMORPHONE HCL [Concomitant]
  11. FLUOXETINE HCL [Concomitant]
  12. TEMAZEPAM [Concomitant]
  13. CYCLOBENAZPRINE [Concomitant]
  14. AMLODIPINE [Concomitant]
  15. ATORVASTATIN [Concomitant]
  16. SENNA-MINT WAF [Concomitant]

REACTIONS (1)
  - NEUTROPENIA [None]
